FAERS Safety Report 6956001-2 (Version None)
Quarter: 2010Q3

REPORT INFORMATION
  Report Type: 
  Country: None (occurrence: None)
  Receive Date: 20100826
  Receipt Date: 20100816
  Transmission Date: 20110219
  Serious: Yes (Other)
  Sender: FDA-Public Use
  Company Number: OXER20100002

PATIENT
  Age: 66 Year
  Sex: Male

DRUGS (3)
  1. OXYCODONE HCL [Suspect]
     Indication: PAIN
     Dosage: 120 MG, Q DAY, ORAL
     Route: 048
  2. FENTANYL-100 [Suspect]
     Indication: PAIN
     Dosage: FOUR PUFFS OF 200 UG/PUFF, NASAL
     Route: 045
  3. ESCITALOPRAM [Suspect]
     Indication: AFFECTIVE DISORDER
     Dosage: 5 MG, ONCE A DAY

REACTIONS (4)
  - DRUG INTERACTION [None]
  - SEROTONIN SYNDROME [None]
  - VISION BLURRED [None]
  - WEIGHT DECREASED [None]
